FAERS Safety Report 7231985-6 (Version None)
Quarter: 2011Q1

REPORT INFORMATION
  Report Type: 
  Country: None (occurrence: None)
  Receive Date: 20110118
  Receipt Date: 20110113
  Transmission Date: 20110831
  Serious: Yes (Death)
  Sender: FDA-Public Use
  Company Number: US-ASTRAZENECA-2011SE02277

PATIENT
  Age: 71 Year
  Sex: Male

DRUGS (2)
  1. SEROQUEL [Suspect]
     Indication: NERVOUSNESS
     Route: 048
  2. NEXIUM [Suspect]
     Indication: ABDOMINAL PAIN UPPER
     Route: 048

REACTIONS (1)
  - NEOPLASM MALIGNANT [None]
